FAERS Safety Report 23957399 (Version 3)
Quarter: 2024Q3

REPORT INFORMATION
  Report Type: Spontaneous
  Country: US (occurrence: US)
  Receive Date: 20240610
  Receipt Date: 20240813
  Transmission Date: 20241016
  Serious: No
  Sender: INSUD PHARMA
  Company Number: US-INSUD PHARMA-2406US04523

PATIENT

DRUGS (6)
  1. PROGESTERONE [Suspect]
     Active Substance: PROGESTERONE
     Indication: Hormone replacement therapy
     Dosage: UNK
     Route: 048
     Dates: start: 2024, end: 20240607
  2. PROGESTERONE [Suspect]
     Active Substance: PROGESTERONE
     Dosage: UNK
     Dates: end: 2024
  3. ESTRADIOL [Concomitant]
     Active Substance: ESTRADIOL
     Indication: Hormone replacement therapy
     Dosage: CREAM
  4. TESTOSTERONE [Concomitant]
     Active Substance: TESTOSTERONE
     Indication: Hormone replacement therapy
     Dosage: CREAM
  5. TRAZODONE [Concomitant]
     Active Substance: TRAZODONE HYDROCHLORIDE
  6. ZYRTEC [Concomitant]
     Active Substance: CETIRIZINE HYDROCHLORIDE

REACTIONS (8)
  - Headache [Recovered/Resolved]
  - General symptom [Recovered/Resolved]
  - Vaginal haemorrhage [Recovered/Resolved]
  - Abdominal pain [Recovered/Resolved]
  - Underdose [Unknown]
  - Poor quality product administered [Unknown]
  - Product dosage form issue [Unknown]
  - Product use in unapproved indication [Unknown]

NARRATIVE: CASE EVENT DATE: 20240101
